FAERS Safety Report 6216010-8 (Version None)
Quarter: 2009Q2

REPORT INFORMATION
  Report Type: 
  Country: None (occurrence: None)
  Receive Date: 20090605
  Receipt Date: 20090528
  Transmission Date: 20091009
  Serious: Yes (Hospitalization)
  Sender: FDA-Public Use
  Company Number: JP-BRISTOL-MYERS SQUIBB COMPANY-14628838

PATIENT
  Age: 55 Year
  Sex: Male

DRUGS (4)
  1. ABILIFY [Suspect]
     Indication: SCHIZOPHRENIA
     Dosage: 18MG:10-16APR08(7D),15-21MAY08(7D) 24MG:17APR-14MAY(28D) 12MG:22MAY-15DEC(208D) 6MG:16-23DEC08
     Route: 048
     Dates: start: 20080410, end: 20081223
  2. BIPERIDEN HYDROCHLORIDE TAB [Concomitant]
  3. AMARYL [Concomitant]
     Dosage: FORM = TAB
     Dates: start: 20061128
  4. RISPERIDONE [Concomitant]
     Dosage: 08MAY08 DOSE WAS INCREASED
     Dates: start: 20080207

REACTIONS (3)
  - BLOOD TRIGLYCERIDES INCREASED [None]
  - DIABETES MELLITUS [None]
  - PSYCHIATRIC SYMPTOM [None]
